FAERS Safety Report 8076147-8 (Version None)
Quarter: 2012Q1

REPORT INFORMATION
  Report Type: 
  Country: None (occurrence: None)
  Receive Date: 20120127
  Receipt Date: 20111103
  Transmission Date: 20120608
  Serious: No
  Sender: FDA-Public Use
  Company Number: US-GLAXOSMITHKLINE-A0951875A

PATIENT
  Age: 62 Year
  Sex: Female
  Weight: 71.4 kg

DRUGS (6)
  1. SYNTHROID [Concomitant]
  2. ATIVAN [Concomitant]
  3. CRESTOR [Concomitant]
  4. IMITREX [Concomitant]
  5. PHENERGAN [Concomitant]
  6. WELLBUTRIN [Suspect]
     Indication: EX-TOBACCO USER
     Route: 048

REACTIONS (2)
  - IRRITABILITY [None]
  - NAUSEA [None]
